FAERS Safety Report 16766906 (Version 1)
Quarter: 2019Q3

REPORT INFORMATION
  Report Type: Spontaneous
  Country: KR (occurrence: KR)
  Receive Date: 20190903
  Receipt Date: 20190903
  Transmission Date: 20191005
  Serious: Yes (Other)
  Sender: FDA-Public Use
  Company Number: KR-ASTRAZENECA-2019SF14751

PATIENT
  Age: 49 Year
  Sex: Male
  Weight: 121 kg

DRUGS (6)
  1. GLUCOPHAGE XR [Concomitant]
     Active Substance: METFORMIN HYDROCHLORIDE
     Dosage: 1000MG BID
     Route: 048
     Dates: start: 20130926
  2. FORXIGA [Suspect]
     Active Substance: DAPAGLIFLOZIN
     Dosage: 10MG
     Route: 048
     Dates: start: 20160406, end: 20181202
  3. ACERTIL [Concomitant]
     Active Substance: PERINDOPRIL ARGININE
     Dosage: 4MG QD
     Route: 048
     Dates: start: 20060712
  4. URSA [Concomitant]
     Active Substance: URSODIOL
     Dosage: 100MG TID
     Route: 048
     Dates: start: 20111031
  5. XIGDUO XR [Suspect]
     Active Substance: DAPAGLIFLOZIN PROPANEDIOL\METFORMIN HYDROCHLORIDE
     Dosage: 10/1000MG, UNKNOWN
     Route: 048
     Dates: start: 20181203, end: 20190807
  6. CRESTOR [Concomitant]
     Active Substance: ROSUVASTATIN CALCIUM
     Dosage: 10MG QD
     Route: 048
     Dates: start: 20130509

REACTIONS (3)
  - Perineal abscess [Unknown]
  - Genital infection [Unknown]
  - Urinary tract infection [Unknown]

NARRATIVE: CASE EVENT DATE: 20190806
